FAERS Safety Report 5355616-5 (Version None)
Quarter: 2007Q2

REPORT INFORMATION
  Report Type: 
  Country: None (occurrence: None)
  Receive Date: 20070613
  Receipt Date: 20070605
  Transmission Date: 20071010
  Serious: Yes (Other)
  Sender: FDA-Public Use
  Company Number: B0467758A

PATIENT
  Sex: Male

DRUGS (6)
  1. AVANDIA [Suspect]
     Dosage: 4MG PER DAY
  2. DIAMICRON [Concomitant]
     Dosage: 30MG PER DAY
  3. ASPIRIN [Concomitant]
  4. AVAPRO [Concomitant]
     Route: 065
  5. LIPITOR [Concomitant]
     Dosage: 40MG AT NIGHT
     Route: 065
  6. NOTEN [Concomitant]
     Dosage: 50MG UNKNOWN
     Route: 065

REACTIONS (2)
  - MUSCLE SPASMS [None]
  - PAIN [None]
